FAERS Safety Report 11403759 (Version 1)
Quarter: 2015Q3

REPORT INFORMATION
  Report Type: Spontaneous
  Country: US (occurrence: None)
  Receive Date: 20150820
  Receipt Date: 20150820
  Transmission Date: 20151125
  Serious: No
  Sender: FDA-Public Use
  Company Number: None

PATIENT
  Age: 63 Year
  Sex: Male
  Weight: 78.93 kg

DRUGS (6)
  1. VARENICLINE OR MATCHED PLACEBO 1.0MG PFIZER [Suspect]
     Active Substance: VARENICLINE
     Indication: SMOKING CESSATION THERAPY
     Route: 048
     Dates: start: 20150420, end: 20150801
  2. ENALAPRIL [Concomitant]
     Active Substance: ENALAPRIL
  3. NIFEDIPINE. [Concomitant]
     Active Substance: NIFEDIPINE
  4. VARENICLINE 0.5MG (QD D1-3 BID D 4-7), 1.0MG (BID D 8-84) PFIZER [Suspect]
     Active Substance: VARENICLINE
     Indication: SMOKING CESSATION THERAPY
     Dosage: 0.5 OR 1.0MG BID ORAL
     Route: 048
     Dates: start: 20150413, end: 20150419
  5. ATOVASTATIN [Concomitant]
     Active Substance: ATORVASTATIN
  6. ASPIRIN. [Concomitant]
     Active Substance: ASPIRIN

REACTIONS (1)
  - Suicidal ideation [None]

NARRATIVE: CASE EVENT DATE: 20150815
